FAERS Safety Report 13980436 (Version 2)
Quarter: 2018Q1

REPORT INFORMATION
  Report Type: Report from Study
  Country: UG (occurrence: UG)
  Receive Date: 20170918
  Receipt Date: 20180203
  Transmission Date: 20180508
  Serious: Yes (Other)
  Sender: FDA-Public Use
  Company Number: UG-HETERO CORPORATE-HET2017UG00185

PATIENT
  Age: 28 Year
  Sex: Female

DRUGS (4)
  1. EFAVIRENZ. [Suspect]
     Active Substance: EFAVIRENZ
     Indication: HIV INFECTION
     Dosage: 600 MG, QD
     Route: 048
     Dates: start: 20170309, end: 20170313
  2. TIVICAY [Suspect]
     Active Substance: DOLUTEGRAVIR SODIUM
     Indication: HIV INFECTION
     Dosage: 50 MG, QD
     Route: 048
     Dates: start: 20170314
  3. LAMIVUDINE. [Suspect]
     Active Substance: LAMIVUDINE
     Indication: HIV INFECTION
     Dosage: 300 MG, QD
     Route: 048
     Dates: start: 20170309
  4. TENOFOVIR [Suspect]
     Active Substance: TENOFOVIR
     Indication: HIV INFECTION
     Dosage: 300 MG, QD
     Route: 048
     Dates: start: 20170309

REACTIONS (3)
  - Drug-induced liver injury [Unknown]
  - Foetal death [Unknown]
  - Exposure during pregnancy [Unknown]
